FAERS Safety Report 22397585 (Version 1)
Quarter: 2023Q2

REPORT INFORMATION
  Report Type: Spontaneous
  Country: US (occurrence: US)
  Receive Date: 20230602
  Receipt Date: 20230602
  Transmission Date: 20230722
  Serious: Yes (Hospitalization)
  Sender: FDA-Public Use
  Company Number: US-NOVOPROD-1071219

PATIENT
  Age: 58 Year
  Sex: Female

DRUGS (1)
  1. OZEMPIC [Suspect]
     Active Substance: SEMAGLUTIDE
     Indication: Product used for unknown indication
     Dosage: 19 CLICKS EVERY WEEK
     Route: 058
     Dates: start: 202304, end: 202305

REACTIONS (3)
  - Seizure [Recovered/Resolved]
  - Wrong technique in product usage process [Recovered/Resolved]
  - Product dose omission in error [Recovered/Resolved]

NARRATIVE: CASE EVENT DATE: 20230401
